FAERS Safety Report 22064044 (Version 2)
Quarter: 2023Q2

REPORT INFORMATION
  Report Type: Spontaneous
  Country: FR (occurrence: FR)
  Receive Date: 20230306
  Receipt Date: 20230403
  Transmission Date: 20230722
  Serious: Yes (Hospitalization)
  Sender: FDA-Public Use
  Company Number: None

PATIENT
  Age: 69 Year
  Sex: Female
  Weight: 55.6 kg

DRUGS (7)
  1. RYDAPT [Suspect]
     Active Substance: MIDOSTAURIN
     Indication: Mastocytosis
     Dosage: UNK (POSOLOGIE NON PRECISEE)
     Route: 048
     Dates: start: 202301, end: 202301
  2. DEXAMETHASONE [Suspect]
     Active Substance: DEXAMETHASONE
     Indication: Prophylaxis
     Dosage: 20 MG, QD (10 MGX2/J)
     Route: 042
     Dates: start: 202301, end: 202301
  3. ALPRAZOLAM [Concomitant]
     Active Substance: ALPRAZOLAM
     Indication: Product used for unknown indication
     Dosage: UNK
     Route: 065
  4. OROCAL VITAMINE D3 [Concomitant]
     Indication: Product used for unknown indication
     Dosage: UNK
     Route: 065
  5. PROMESTRIENE [Concomitant]
     Active Substance: PROMESTRIENE
     Indication: Product used for unknown indication
     Dosage: UNK
     Route: 065
  6. CEFIXIME [Concomitant]
     Active Substance: CEFIXIME
     Indication: Product used for unknown indication
     Dosage: UNK
     Route: 065
  7. SERTACONAZOLE NITRATE [Concomitant]
     Active Substance: SERTACONAZOLE NITRATE
     Indication: Product used for unknown indication
     Dosage: UNK
     Route: 065

REACTIONS (2)
  - Gastric ulcer [Recovering/Resolving]
  - Gastrointestinal haemorrhage [Recovering/Resolving]

NARRATIVE: CASE EVENT DATE: 20230123
